FAERS Safety Report 24415665 (Version 2)
Quarter: 2024Q4

REPORT INFORMATION
  Report Type: Spontaneous
  Country: US (occurrence: US)
  Receive Date: 20241009
  Receipt Date: 20241031
  Transmission Date: 20250114
  Serious: No
  Sender: ABBVIE
  Company Number: US-ABBVIE-5953736

PATIENT
  Age: 77 Year
  Sex: Female

DRUGS (5)
  1. RESTASIS [Suspect]
     Active Substance: CYCLOSPORINE
     Indication: Dry eye
     Dosage: BOTH EYES
     Route: 047
     Dates: start: 20240802, end: 20240911
  2. DOXYCYCLINE [Concomitant]
     Active Substance: DOXYCYCLINE
     Indication: Dry eye
     Route: 048
  3. MINERALS\OMEGA-3 FATTY ACIDS\VITAMINS [Concomitant]
     Active Substance: MINERALS\OMEGA-3 FATTY ACIDS\VITAMINS
     Indication: Dry eye
     Dosage: 2 SOFT GEL TABLETS
     Route: 048
  4. LOSARTAN [Concomitant]
     Active Substance: LOSARTAN
     Indication: Hypertension
  5. ROSUVASTATIN [Concomitant]
     Active Substance: ROSUVASTATIN
     Indication: Blood cholesterol abnormal
     Route: 048

REACTIONS (6)
  - Ocular hyperaemia [Not Recovered/Not Resolved]
  - Lacrimation increased [Unknown]
  - Pruritus [Unknown]
  - Vision blurred [Not Recovered/Not Resolved]
  - Drug ineffective [Not Recovered/Not Resolved]
  - Meibomian gland dysfunction [Not Recovered/Not Resolved]

NARRATIVE: CASE EVENT DATE: 20240101
